FAERS Safety Report 6894504-X (Version None)
Quarter: 2010Q3

REPORT INFORMATION
  Report Type: 
  Country: None (occurrence: None)
  Receive Date: 20100802
  Receipt Date: 20100630
  Transmission Date: 20110219
  Serious: No
  Sender: FDA-Public Use
  Company Number: US-BAYER-201017424BCC

PATIENT
  Age: 48 Year
  Sex: Female

DRUGS (1)
  1. FINACEA [Suspect]
     Indication: ROSACEA
     Route: 061
     Dates: start: 20100628, end: 20100629

REACTIONS (3)
  - FACIAL PAIN [None]
  - ORAL PRURITUS [None]
  - THROAT IRRITATION [None]
